FAERS Safety Report 9856377 (Version 2)
Quarter: 2014Q1

REPORT INFORMATION
  Report Type: Spontaneous
  Country: US (occurrence: US)
  Receive Date: 20140130
  Receipt Date: 20140217
  Transmission Date: 20141002
  Serious: No
  Sender: FDA-Public Use
  Company Number: US-PFIZER INC-2014027327

PATIENT
  Age: 70 Year
  Sex: Female
  Weight: 65.31 kg

DRUGS (1)
  1. DETROL LA [Suspect]
     Indication: BLADDER DYSFUNCTION
     Dosage: 4 MG, DAILY

REACTIONS (1)
  - Nasopharyngitis [Not Recovered/Not Resolved]
